FAERS Safety Report 21174745 (Version 2)
Quarter: 2022Q3

REPORT INFORMATION
  Report Type: Report from Study
  Country: US (occurrence: US)
  Receive Date: 20220805
  Receipt Date: 20220812
  Transmission Date: 20221027
  Serious: Yes (Hospitalization, Other)
  Sender: FDA-Public Use
  Company Number: US-GBT-014844

PATIENT
  Age: 48 Year
  Sex: Female

DRUGS (13)
  1. OXBRYTA [Suspect]
     Active Substance: VOXELOTOR
     Indication: Sickle cell disease
     Route: 048
     Dates: start: 20200708
  2. MORPHINE [Concomitant]
     Active Substance: MORPHINE
     Indication: Sickle cell disease
     Dosage: ONCE
     Route: 042
     Dates: start: 20210616
  3. cholecalciferol, vitamin D3 [Concomitant]
     Indication: Sickle cell disease
     Route: 048
     Dates: start: 20180608
  4. ACETAMINOPHEN [Concomitant]
     Active Substance: ACETAMINOPHEN
     Indication: Sickle cell disease
     Route: 048
     Dates: start: 20191130, end: 20191210
  5. MORPHINE [Concomitant]
     Active Substance: MORPHINE
     Indication: Sickle cell disease
     Dosage: ONCE
     Route: 042
     Dates: start: 20191128, end: 20191128
  6. MORPHINE [Concomitant]
     Active Substance: MORPHINE
     Indication: Sickle cell disease
     Dosage: ONCE
     Route: 042
     Dates: start: 20191128, end: 20191128
  7. oxycodone-acetaminophen (percocet) [Concomitant]
     Indication: Sickle cell disease
     Dosage: 5-325 MG
     Route: 048
     Dates: start: 20201007, end: 20201106
  8. FOLIC ACID [Concomitant]
     Active Substance: FOLIC ACID
     Indication: Sickle cell disease
     Route: 048
     Dates: start: 20110106
  9. AZITHROMYCIN [Concomitant]
     Active Substance: AZITHROMYCIN
     Indication: Pneumonia
     Route: 048
     Dates: start: 20191127, end: 20191204
  10. AZITHROMYCIN [Concomitant]
     Active Substance: AZITHROMYCIN
     Indication: Pneumonia
     Dosage: 875-125 MG
     Route: 048
     Dates: start: 20191127, end: 20191204
  11. oxycodone-acetaminophen (percocet) [Concomitant]
     Indication: Sickle cell disease
     Dosage: 7.5-325 MG
     Route: 048
     Dates: start: 20180608, end: 20191128
  12. MORPHINE [Concomitant]
     Active Substance: MORPHINE
     Indication: Sickle cell disease
     Dosage: ONCE
     Route: 042
     Dates: start: 20191128, end: 20191128
  13. MORPHINE [Concomitant]
     Active Substance: MORPHINE
     Indication: Sickle cell disease
     Route: 042
     Dates: start: 20191128, end: 20191130

REACTIONS (1)
  - Pneumonia [Recovered/Resolved]

NARRATIVE: CASE EVENT DATE: 20191127
